FAERS Safety Report 11848101 (Version 4)
Quarter: 2016Q2

REPORT INFORMATION
  Report Type: Report from Study
  Country: DE (occurrence: DE)
  Receive Date: 20151217
  Receipt Date: 20160524
  Transmission Date: 20160815
  Serious: Yes (Hospitalization, Other)
  Sender: FDA-Public Use
  Company Number: DE-GILEAD-2015-0180527

PATIENT
  Age: 67 Year
  Sex: Male
  Weight: 76 kg

DRUGS (3)
  1. COPEGUS [Suspect]
     Active Substance: RIBAVIRIN
     Dosage: 400 MG, TID
     Route: 048
     Dates: start: 20150817, end: 20150914
  2. COPEGUS [Suspect]
     Active Substance: RIBAVIRIN
     Indication: CHRONIC HEPATITIS C
     Dosage: 400 MG, TID
     Route: 048
     Dates: start: 20150624, end: 20150914
  3. SOFOSBUVIR [Suspect]
     Active Substance: SOFOSBUVIR
     Indication: CHRONIC HEPATITIS C
     Dosage: 400 MG, QD
     Route: 048
     Dates: start: 20150624, end: 20150914

REACTIONS (2)
  - Fatigue [Unknown]
  - Circulatory collapse [Recovered/Resolved]

NARRATIVE: CASE EVENT DATE: 2015
